FAERS Safety Report 17949650 (Version 1)
Quarter: 2020Q2

REPORT INFORMATION
  Report Type: Spontaneous
  Country: ES (occurrence: ES)
  Receive Date: 20200626
  Receipt Date: 20200626
  Transmission Date: 20200714
  Serious: Yes (Other)
  Sender: FDA-Public Use
  Company Number: ES-TEVA-2020-ES-1791451

PATIENT
  Age: 46 Year
  Sex: Male

DRUGS (5)
  1. AZITROMICINA (7019A) [Suspect]
     Active Substance: AZITHROMYCIN
     Indication: COVID-19 PNEUMONIA
     Route: 065
     Dates: start: 20200322, end: 20200327
  2. LOPINAVIR+RITONAVIR [Suspect]
     Active Substance: LOPINAVIR\RITONAVIR
     Indication: COVID-19 PNEUMONIA
     Route: 065
     Dates: start: 20200322, end: 20200327
  3. CEFTRIAXONA (501A) [Suspect]
     Active Substance: CEFTRIAXONE
     Indication: COVID-19 PNEUMONIA
     Route: 065
     Dates: start: 20200322, end: 20200327
  4. INTERF - INTERFERON (SIN ESPECIFICAR) [Suspect]
     Active Substance: INTERFERON
     Indication: COVID-19 PNEUMONIA
     Route: 065
     Dates: start: 20200322, end: 20200327
  5. HIDROXICLOROQUINA (2143A) [Suspect]
     Active Substance: HYDROXYCHLOROQUINE
     Indication: COVID-19 PNEUMONIA
     Route: 065
     Dates: start: 20200322, end: 20200327

REACTIONS (2)
  - Liver function test abnormal [Recovering/Resolving]
  - Hypertransaminasaemia [Recovering/Resolving]

NARRATIVE: CASE EVENT DATE: 20200322
